FAERS Safety Report 25354659 (Version 2)
Quarter: 2025Q2

REPORT INFORMATION
  Report Type: Spontaneous
  Country: US (occurrence: US)
  Receive Date: 20250524
  Receipt Date: 20250604
  Transmission Date: 20250716
  Serious: No
  Sender: ABBVIE
  Company Number: US-ABBVIE-6293518

PATIENT
  Age: 43 Year
  Sex: Female
  Weight: 59 kg

DRUGS (1)
  1. BOTOX COSMETIC [Suspect]
     Active Substance: ONABOTULINUMTOXINA
     Indication: Skin wrinkling
     Route: 030
     Dates: start: 2018, end: 2018

REACTIONS (5)
  - Burning sensation [Unknown]
  - Pain [Unknown]
  - Crying [Unknown]
  - Hyperhidrosis [Unknown]
  - Emotional distress [Unknown]

NARRATIVE: CASE EVENT DATE: 20250520
